FAERS Safety Report 25872192 (Version 1)
Quarter: 2025Q4

REPORT INFORMATION
  Report Type: Spontaneous
  Country: CH (occurrence: CH)
  Receive Date: 20251002
  Receipt Date: 20251002
  Transmission Date: 20260118
  Serious: Yes (Hospitalization, Other)
  Sender: LEO PHARM
  Company Number: None

PATIENT
  Age: 48 Year
  Sex: Female
  Weight: 78 kg

DRUGS (5)
  1. ADBRY [Suspect]
     Active Substance: TRALOKINUMAB-LDRM
     Indication: Dermatitis atopic
     Dosage: 300 MG, EVERY 2 WEEKS, SC
     Route: 058
     Dates: start: 20220817, end: 202212
  2. ADBRY [Suspect]
     Active Substance: TRALOKINUMAB-LDRM
     Indication: Dermatitis atopic
     Dosage: 600 MG, SC FIRST DOSE
     Route: 058
     Dates: start: 20220805, end: 20220805
  3. BETAMETHASONE [Concomitant]
     Active Substance: BETAMETHASONE
     Indication: Dermatitis atopic
     Dosage: LONG TERM TREATMENT, DOSE UNKNOWN
     Route: 003
  4. Sicorten plus [Concomitant]
     Indication: Dermatitis atopic
     Dosage: LONG TERM TREATMENT, DOSE UNKNOWN
  5. PROTOPIC [Concomitant]
     Active Substance: TACROLIMUS
     Indication: Dermatitis atopic
     Dosage: LONG TERM TREATMENT, DOSING UNSPECIFIED
     Route: 003

REACTIONS (1)
  - Cerebral haemorrhage [Recovered/Resolved]

NARRATIVE: CASE EVENT DATE: 20221209
